FAERS Safety Report 23954309 (Version 1)
Quarter: 2024Q2

REPORT INFORMATION
  Report Type: Spontaneous
  Country: US (occurrence: None)
  Receive Date: 20240609
  Receipt Date: 20240609
  Transmission Date: 20240716
  Serious: No
  Sender: FDA-Public Use
  Company Number: US-ROCHE-3507988

PATIENT

DRUGS (1)
  1. TECENTRIQ [Suspect]
     Active Substance: ATEZOLIZUMAB
     Indication: Lung carcinoma cell type unspecified stage IV
     Route: 065

REACTIONS (2)
  - Product preparation issue [Unknown]
  - No adverse event [Unknown]
